FAERS Safety Report 9473942 (Version 1)
Quarter: 2013Q3

REPORT INFORMATION
  Report Type: Spontaneous
  Country: US (occurrence: US)
  Receive Date: 20130823
  Receipt Date: 20130823
  Transmission Date: 20140515
  Serious: No
  Sender: FDA-Public Use
  Company Number: US-BRISTOL-MYERS SQUIBB COMPANY-17169632

PATIENT
  Age: 52 Year
  Sex: Female

DRUGS (10)
  1. SPRYCEL [Suspect]
     Indication: ACUTE LYMPHOCYTIC LEUKAEMIA
     Route: 048
     Dates: start: 20121121
  2. ACYCLOVIR [Concomitant]
  3. GLIPIZIDE [Concomitant]
  4. HYDROCHLOROTHIAZIDE [Concomitant]
  5. LANTUS [Concomitant]
  6. LEVOTHROID [Concomitant]
  7. LEVOFLOXACIN [Concomitant]
  8. LOSARTAN [Concomitant]
  9. MEPRON [Concomitant]
  10. FLUCONAZOLE [Concomitant]

REACTIONS (1)
  - Diarrhoea [Unknown]
